FAERS Safety Report 6964781-5 (Version None)
Quarter: 2010Q3

REPORT INFORMATION
  Report Type: 
  Country: None (occurrence: None)
  Receive Date: 20100903
  Receipt Date: 20100823
  Transmission Date: 20110219
  Serious: Yes (Other)
  Sender: FDA-Public Use
  Company Number: US-PFIZER INC-2010106262

PATIENT
  Sex: Male

DRUGS (2)
  1. LYRICA [Suspect]
     Indication: BACK PAIN
     Dosage: UNK
     Route: 048
     Dates: start: 20100801, end: 20100823
  2. ACETYLSALICYLIC ACID [Concomitant]
     Dosage: UNK

REACTIONS (3)
  - FLUID RETENTION [None]
  - OEDEMA PERIPHERAL [None]
  - WEIGHT INCREASED [None]
